FAERS Safety Report 4704593-6 (Version None)
Quarter: 2005Q2

REPORT INFORMATION
  Report Type: 
  Country: None (occurrence: None)
  Receive Date: 20050629
  Receipt Date: 20050613
  Transmission Date: 20051028
  Serious: Yes (Hospitalization)
  Sender: FDA-Public Use
  Company Number: 2005-BP-10338RO

PATIENT
  Age: 40 Year
  Sex: Female

DRUGS (3)
  1. LEUCOVORIN CALCIUM [Suspect]
     Dosage: 50 MG DAILY (NR), PO; SEE IMAGE
     Route: 048
     Dates: start: 20050219, end: 20050224
  2. LEUCOVORIN CALCIUM [Suspect]
     Dosage: 50 MG DAILY (NR), PO; SEE IMAGE
     Route: 048
     Dates: start: 20050225
  3. BACTRIM [Suspect]
     Indication: PNEUMOCYSTIS JIROVECI PNEUMONIA
     Dosage: SEE TEXT (NR), IV
     Route: 042
     Dates: start: 20050219, end: 20050224

REACTIONS (12)
  - ALANINE AMINOTRANSFERASE INCREASED [None]
  - ASPARTATE AMINOTRANSFERASE INCREASED [None]
  - BLOOD ALKALINE PHOSPHATASE INCREASED [None]
  - EOSINOPHILIA [None]
  - GAMMA-GLUTAMYLTRANSFERASE INCREASED [None]
  - HAEMOGLOBIN DECREASED [None]
  - LEUKOPENIA [None]
  - NEUTROPENIA [None]
  - PRURITUS [None]
  - RASH MACULAR [None]
  - TRANSAMINASES INCREASED [None]
  - WHITE BLOOD CELL COUNT DECREASED [None]
